FAERS Safety Report 9435164 (Version 1)
Quarter: 2013Q3

REPORT INFORMATION
  Report Type: Spontaneous
  Country: AT (occurrence: AT)
  Receive Date: 20130801
  Receipt Date: 20130801
  Transmission Date: 20140515
  Serious: Yes (Death, Other)
  Sender: FDA-Public Use
  Company Number: AT-JNJFOC-20130617727

PATIENT
  Age: 71 Year
  Sex: Male

DRUGS (3)
  1. XARELTO [Suspect]
     Indication: CEREBROVASCULAR ACCIDENT PROPHYLAXIS
     Route: 048
     Dates: start: 20130502, end: 20130606
  2. XARELTO [Suspect]
     Indication: ATRIAL FIBRILLATION
     Route: 048
     Dates: start: 20130502, end: 20130606
  3. COUMADIN [Concomitant]
     Route: 065

REACTIONS (5)
  - Myocardial infarction [Fatal]
  - Dilatation ventricular [Fatal]
  - Left ventricular hypertrophy [Fatal]
  - Lower gastrointestinal haemorrhage [Recovered/Resolved with Sequelae]
  - Melaena [Recovered/Resolved with Sequelae]
